FAERS Safety Report 7463931-4 (Version None)
Quarter: 2011Q2

REPORT INFORMATION
  Report Type: 
  Country: None (occurrence: None)
  Receive Date: 20110506
  Receipt Date: 20110503
  Transmission Date: 20111010
  Serious: Yes (Death, Hospitalization)
  Sender: FDA-Public Use
  Company Number: MX-SANOFI-AVENTIS-2011SA027447

PATIENT
  Age: 69 Year
  Sex: Female

DRUGS (1)
  1. INSULIN [Suspect]
     Indication: TYPE 2 DIABETES MELLITUS
     Dates: start: 20110201, end: 20110201

REACTIONS (2)
  - RENAL FAILURE [None]
  - BRAIN HYPOXIA [None]
